FAERS Safety Report 5499927-1 (Version None)
Quarter: 2007Q4

REPORT INFORMATION
  Report Type: 
  Country: None (occurrence: None)
  Receive Date: 20071026
  Receipt Date: 20071016
  Transmission Date: 20080405
  Serious: Yes (Other)
  Sender: FDA-Public Use
  Company Number: DE-PFIZER INC-2007088006

PATIENT
  Age: 7 Year
  Sex: Male

DRUGS (1)
  1. ZITHROMAX [Suspect]

REACTIONS (2)
  - JOINT SWELLING [None]
  - RASH [None]
